FAERS Safety Report 19037652 (Version 1)
Quarter: 2021Q1

REPORT INFORMATION
  Report Type: Spontaneous
  Country: US (occurrence: US)
  Receive Date: 20210322
  Receipt Date: 20210322
  Transmission Date: 20210420
  Serious: Yes (Death, Other)
  Sender: FDA-Public Use
  Company Number: US-PFIZER INC-2021273589

PATIENT

DRUGS (2)
  1. NORFLOXACIN [Interacting]
     Active Substance: NORFLOXACIN
     Dosage: UNK
  2. THEOPHYLLINE [Suspect]
     Active Substance: THEOPHYLLINE ANHYDROUS
     Dosage: UNK

REACTIONS (3)
  - Drug interaction [Fatal]
  - Aspiration [Fatal]
  - Seizure [Fatal]
